FAERS Safety Report 21977052 (Version 1)
Quarter: 2023Q1

REPORT INFORMATION
  Report Type: Spontaneous
  Country: CN (occurrence: None)
  Receive Date: 20230210
  Receipt Date: 20230210
  Transmission Date: 20230417
  Serious: Yes (Other)
  Sender: FDA-Public Use
  Company Number: CN-ROCHE-3276767

PATIENT
  Age: 64 Year
  Sex: Female
  Weight: 65 kg

DRUGS (12)
  1. TRASTUZUMAB [Suspect]
     Active Substance: TRASTUZUMAB
     Indication: Invasive ductal breast carcinoma
     Dosage: 8 MG/KG FOR THE FIRST TIME, 6 MG/KG FOR THE LAST TIME
     Route: 065
     Dates: start: 20200225
  2. TRASTUZUMAB [Suspect]
     Active Substance: TRASTUZUMAB
     Dosage: 8 MG/KG FOR THE FIRST TIME, 6 MG/KG FOR THE LAST TIME
     Route: 065
     Dates: start: 20211027
  3. TRASTUZUMAB [Suspect]
     Active Substance: TRASTUZUMAB
     Route: 065
     Dates: start: 20220401
  4. PERTUZUMAB [Suspect]
     Active Substance: PERTUZUMAB
     Indication: Invasive ductal breast carcinoma
     Dosage: 840 MG FOR THE FIRST TIME, 420 MG FOR MAINTENANCE IN THE LATER PERIOD
     Route: 065
     Dates: start: 20211027
  5. PERTUZUMAB [Suspect]
     Active Substance: PERTUZUMAB
     Route: 065
     Dates: start: 20220401
  6. ADO-TRASTUZUMAB EMTANSINE [Suspect]
     Active Substance: ADO-TRASTUZUMAB EMTANSINE
     Indication: Invasive ductal breast carcinoma
     Route: 065
     Dates: start: 20220228
  7. DOCETAXEL [Concomitant]
     Active Substance: DOCETAXEL
     Indication: Invasive ductal breast carcinoma
     Route: 065
     Dates: start: 20200225
  8. PYROTINIB [Concomitant]
     Active Substance: PYROTINIB
     Indication: Invasive ductal breast carcinoma
     Dates: start: 20200521
  9. PACLITAXEL [Concomitant]
     Active Substance: PACLITAXEL
     Indication: Invasive ductal breast carcinoma
     Dates: start: 20211027
  10. DENOSUMAB [Concomitant]
     Active Substance: DENOSUMAB
     Indication: Invasive ductal breast carcinoma
     Dates: start: 202111
  11. ERIBULIN [Concomitant]
     Active Substance: ERIBULIN
     Indication: Invasive ductal breast carcinoma
     Dates: start: 20220401
  12. CAPECITABINE [Concomitant]
     Active Substance: CAPECITABINE
     Indication: Invasive ductal breast carcinoma
     Route: 048
     Dates: start: 20200521

REACTIONS (3)
  - Diarrhoea [Recovering/Resolving]
  - Mouth ulceration [Unknown]
  - Agranulocytosis [Unknown]
